FAERS Safety Report 24013790 (Version 5)
Quarter: 2024Q3

REPORT INFORMATION
  Report Type: Report from Study
  Country: DE (occurrence: DE)
  Receive Date: 20240626
  Receipt Date: 20240906
  Transmission Date: 20241017
  Serious: Yes (Hospitalization)
  Sender: ROCHE
  Company Number: DE-ROCHE-10000008542

PATIENT
  Age: 64 Year
  Sex: Female

DRUGS (11)
  1. OCRELIZUMAB [Suspect]
     Active Substance: OCRELIZUMAB
     Indication: Relapsing multiple sclerosis
     Dosage: ON 07/SEP/2023 RECEIVED MOST RECENT DOSE OF OCREVUS 300 MG
     Route: 042
     Dates: start: 20230525
  2. VALSARTAN [Concomitant]
     Active Substance: VALSARTAN
     Indication: Hypertension
     Route: 048
     Dates: start: 2019
  3. MOVICOL [Concomitant]
     Active Substance: POLYETHYLENE GLYCOL 3350\POTASSIUM CHLORIDE\SODIUM BICARBONATE\SODIUM CHLORIDE
     Indication: Diverticulitis
     Dates: start: 20230408
  4. SYMBICORT [Concomitant]
     Active Substance: BUDESONIDE\FORMOTEROL FUMARATE DIHYDRATE
     Indication: Dyspnoea
     Route: 055
     Dates: start: 202304
  5. DIMETHINDENE MALEATE [Concomitant]
     Active Substance: DIMETHINDENE MALEATE
     Route: 042
     Dates: start: 20230824, end: 20230824
  6. DIMETHINDENE MALEATE [Concomitant]
     Active Substance: DIMETHINDENE MALEATE
     Route: 042
     Dates: start: 20230525, end: 20230525
  7. PREDNISOLUT L [Concomitant]
     Route: 042
     Dates: start: 20230824, end: 20230824
  8. PREDNISOLUT L [Concomitant]
     Route: 042
     Dates: start: 20230525, end: 20230525
  9. NOVALGIN (METAMIZOLE SODIUM) [Concomitant]
     Active Substance: METAMIZOLE SODIUM
     Indication: Diverticulitis
     Route: 042
     Dates: start: 20230416, end: 20230416
  10. BUTYLSCOPOLAMINE BROMIDE [Concomitant]
     Active Substance: BUTYLSCOPOLAMINE BROMIDE
     Indication: Diverticulitis
     Route: 042
     Dates: start: 20230416, end: 20230416
  11. AMOXICILLIN\CLAVULANATE POTASSIUM [Concomitant]
     Active Substance: AMOXICILLIN\CLAVULANATE POTASSIUM
     Indication: Bronchitis
     Route: 048
     Dates: start: 20230623, end: 202307

REACTIONS (1)
  - Diverticulitis intestinal perforated [Not Recovered/Not Resolved]

NARRATIVE: CASE EVENT DATE: 20240221
